FAERS Safety Report 22143634 (Version 1)
Quarter: 2023Q1

REPORT INFORMATION
  Report Type: Report from Study
  Country: GB (occurrence: GB)
  Receive Date: 20230327
  Receipt Date: 20230327
  Transmission Date: 20230417
  Serious: Yes (Hospitalization)
  Sender: FDA-Public Use
  Company Number: GB-PFIZER INC-PV202300056261

PATIENT
  Age: 42 Year
  Sex: Female
  Weight: 71.1 kg

DRUGS (3)
  1. CARBOPLATIN [Suspect]
     Active Substance: CARBOPLATIN
     Indication: Anal squamous cell carcinoma
     Dosage: AUC 5, CYCLIC (ON DAYS 1, 8 AND 15 OF EACH 28 DAY CYCLE)
     Route: 042
     Dates: start: 20221202
  2. PACLITAXEL [Suspect]
     Active Substance: PACLITAXEL
     Indication: Anal squamous cell carcinoma
     Dosage: 80 MG/M2, CYCLIC (ON DAYS 1, 8 AND 15 OF EACH 28 DAY CYCLE)
     Route: 042
     Dates: start: 20221202
  3. INVESTIGATIONAL PRODUCT [Suspect]
     Active Substance: INVESTIGATIONAL PRODUCT
     Indication: Anal squamous cell carcinoma
     Dosage: ON DAY 1 OF EACH 28-DAY CYCLE
     Dates: start: 20221202

REACTIONS (1)
  - Neutropenic sepsis [Not Recovered/Not Resolved]

NARRATIVE: CASE EVENT DATE: 20230305
